FAERS Safety Report 4526658-4 (Version None)
Quarter: 2004Q4

REPORT INFORMATION
  Report Type: 
  Country: None (occurrence: None)
  Receive Date: 20041214
  Receipt Date: 20041004
  Transmission Date: 20050328
  Serious: Yes (Death)
  Sender: FDA-Public Use
  Company Number: GB-GLAXOSMITHKLINE-B0347078A

PATIENT
  Sex: Female

DRUGS (8)
  1. SEROXAT [Suspect]
     Route: 065
  2. CLOMIPRAMINE HCL [Concomitant]
     Indication: DEPRESSION
     Route: 042
     Dates: start: 20040510, end: 20040901
  3. LORAZEPAM [Concomitant]
     Indication: ANXIETY
     Dosage: 1.5MG PER DAY
     Route: 048
     Dates: start: 20040510, end: 20040517
  4. ALPRAZOLAM [Concomitant]
     Dosage: 1.2MG PER DAY
     Route: 048
     Dates: start: 20040518, end: 20040916
  5. ZOLPIDEM [Concomitant]
     Indication: INSOMNIA
     Dosage: 5MG PER DAY
     Route: 048
     Dates: start: 20040624, end: 20040630
  6. FLURAZEPAM [Concomitant]
     Indication: INSOMNIA
     Route: 048
     Dates: start: 20040727
  7. CLONAZEPAM [Concomitant]
     Indication: EPILEPSY
     Dosage: 2MG PER DAY
     Route: 048
     Dates: start: 20040819
  8. NITRAZEPAM [Concomitant]
     Indication: INSOMNIA
     Route: 048
     Dates: start: 20040715

REACTIONS (1)
  - COMPLETED SUICIDE [None]
